FAERS Safety Report 6122830-0 (Version None)
Quarter: 2009Q1

REPORT INFORMATION
  Report Type: 
  Country: None (occurrence: None)
  Receive Date: 20090318
  Receipt Date: 20090310
  Transmission Date: 20090719
  Serious: Yes (Congenital Anomaly)
  Sender: FDA-Public Use
  Company Number: A0748187A

PATIENT
  Sex: Female

DRUGS (5)
  1. PAXIL [Suspect]
     Indication: ANXIETY
     Dosage: 20MG PER DAY
     Dates: start: 20011101, end: 20040401
  2. PAXIL CR [Suspect]
     Dosage: 12.5MG PER DAY
     Dates: start: 20030512, end: 20040214
  3. BENICAR HCT [Concomitant]
     Dosage: 20MG PER DAY
     Dates: start: 20040101
  4. ZITHROMAX [Concomitant]
     Indication: BRONCHITIS
     Dates: start: 20040101
  5. VITAMIN TAB [Concomitant]

REACTIONS (4)
  - ATELECTASIS [None]
  - COARCTATION OF THE AORTA [None]
  - DRUG EXPOSURE DURING PREGNANCY [None]
  - PATENT DUCTUS ARTERIOSUS [None]
